FAERS Safety Report 8308264-9 (Version None)
Quarter: 2012Q2

REPORT INFORMATION
  Report Type: 
  Country: None (occurrence: None)
  Receive Date: 20120424
  Receipt Date: 20120409
  Transmission Date: 20120825
  Serious: Yes (Other)
  Sender: FDA-Public Use
  Company Number: US-ROCHE-1058022

PATIENT

DRUGS (2)
  1. XARELTO [Suspect]
     Indication: KNEE ARTHROPLASTY
     Route: 048
     Dates: start: 20120201, end: 20120201
  2. KETOROLAC TROMETHAMINE [Suspect]
     Indication: KNEE ARTHROPLASTY
     Dosage: 1 IN 6 HRS
     Route: 048
     Dates: start: 20120201

REACTIONS (3)
  - CONTUSION [None]
  - HAEMORRHAGE [None]
  - WRONG TECHNIQUE IN DRUG USAGE PROCESS [None]
